FAERS Safety Report 25575175 (Version 1)
Quarter: 2025Q3

REPORT INFORMATION
  Report Type: Spontaneous
  Country: CN (occurrence: CN)
  Receive Date: 20250718
  Receipt Date: 20250718
  Transmission Date: 20251020
  Serious: Yes (Other)
  Sender: BEIGENE
  Company Number: CN-BEIGENE-BGN-2025-011338

PATIENT
  Age: 74 Year
  Weight: 51 kg

DRUGS (10)
  1. TISLELIZUMAB [Suspect]
     Active Substance: TISLELIZUMAB
     Indication: Rectal cancer
  2. TISLELIZUMAB [Suspect]
     Active Substance: TISLELIZUMAB
     Route: 041
  3. TISLELIZUMAB [Suspect]
     Active Substance: TISLELIZUMAB
     Route: 041
  4. TISLELIZUMAB [Suspect]
     Active Substance: TISLELIZUMAB
  5. FLUOROURACIL [Suspect]
     Active Substance: FLUOROURACIL
     Indication: Rectal cancer
     Dosage: 2.5 G ONCE EVERY 2 DAYS
  6. FLUOROURACIL [Suspect]
     Active Substance: FLUOROURACIL
     Dosage: 2.5 G ONCE EVERY 2 DAYS
  7. FLUOROURACIL [Suspect]
     Active Substance: FLUOROURACIL
     Dosage: 0.5 G ONCE A DAY
  8. FLUOROURACIL [Suspect]
     Active Substance: FLUOROURACIL
     Dosage: 0.5 G ONCE A DAY
     Route: 042
  9. IRINOTECAN HYDROCHLORIDE [Suspect]
     Active Substance: IRINOTECAN HYDROCHLORIDE
     Indication: Rectal cancer
     Dosage: 200 MG ONCE A DAY
     Route: 041
  10. IRINOTECAN HYDROCHLORIDE [Suspect]
     Active Substance: IRINOTECAN HYDROCHLORIDE
     Dosage: 200 MG ONCE A DAY

REACTIONS (1)
  - Myelosuppression [Recovering/Resolving]
